FAERS Safety Report 17544054 (Version 1)
Quarter: 2020Q1

REPORT INFORMATION
  Report Type: Spontaneous
  Country: US (occurrence: US)
  Receive Date: 20200316
  Receipt Date: 20200316
  Transmission Date: 20200409
  Serious: Yes (Hospitalization)
  Sender: FDA-Public Use
  Company Number: US-STRIDES ARCOLAB LIMITED-2019SP012259

PATIENT
  Age: 59 Year
  Sex: Male

DRUGS (2)
  1. METRONIDAZOLE. [Suspect]
     Active Substance: METRONIDAZOLE
     Dosage: 1.5 GRAM PER DAY
     Route: 042
  2. METRONIDAZOLE. [Suspect]
     Active Substance: METRONIDAZOLE
     Indication: CLOSTRIDIUM DIFFICILE COLITIS
     Dosage: 500 MILLIGRAM, EVERY 8 HRS
     Route: 042

REACTIONS (6)
  - Hypotension [Recovered/Resolved]
  - Mental status changes [Not Recovered/Not Resolved]
  - Tachypnoea [Unknown]
  - Toxic encephalopathy [Unknown]
  - Condition aggravated [Unknown]
  - Tachycardia [Unknown]
